FAERS Safety Report 13351535 (Version 1)
Quarter: 2017Q1

REPORT INFORMATION
  Report Type: Spontaneous
  Country: US (occurrence: US)
  Receive Date: 20170320
  Receipt Date: 20170320
  Transmission Date: 20170429
  Serious: Yes (Other)
  Sender: FDA-Public Use
  Company Number: US-TOLMAR, INC.-TOLG20170095

PATIENT
  Age: 25 Year
  Sex: Female
  Weight: 57.15 kg

DRUGS (1)
  1. METRONIDAZOLE. [Suspect]
     Active Substance: METRONIDAZOLE
     Indication: BACTERIAL VAGINOSIS
     Route: 065
     Dates: start: 20170207, end: 20170208

REACTIONS (4)
  - Abdominal pain [Unknown]
  - Vaginal haemorrhage [Unknown]
  - Uterine inflammation [Unknown]
  - Cervix haemorrhage uterine [Not Recovered/Not Resolved]

NARRATIVE: CASE EVENT DATE: 201702
